FAERS Safety Report 5391840-3 (Version None)
Quarter: 2007Q3

REPORT INFORMATION
  Report Type: 
  Country: None (occurrence: None)
  Receive Date: 20070718
  Receipt Date: 20070709
  Transmission Date: 20080115
  Serious: Yes (Hospitalization, Disabling, Other)
  Sender: FDA-Public Use
  Company Number: 2003-01-1245

PATIENT
  Age: 44 Year
  Sex: Male
  Weight: 86.1834 kg

DRUGS (11)
  1. PEG-INTRON [Suspect]
     Indication: HEPATITIS C
     Dosage: 120 MCG; QW; SC
     Route: 058
     Dates: start: 20020812, end: 20020916
  2. REBETOL [Suspect]
     Indication: HEPATITIS C
     Dosage: BID; PO
     Route: 048
     Dates: start: 20020812, end: 20020916
  3. ACETAMINOPHEN (PREV.) [Concomitant]
  4. IBUPROFEN (PREV.) [Concomitant]
  5. METHADONE (PREV.) [Concomitant]
  6. MILK THISTLE (CON.) [Concomitant]
  7. NICOTINE RESIN (PREV.) [Concomitant]
  8. NICOTINE RESIN (PREV.) [Concomitant]
  9. CLARITIN (PREV.) [Concomitant]
  10. PENICILLIN (PREV.) [Concomitant]
  11. ASPIRIN (CON.) [Concomitant]

REACTIONS (51)
  - ACNE [None]
  - ACTIVITIES OF DAILY LIVING IMPAIRED [None]
  - AGGRESSION [None]
  - ANOREXIA [None]
  - BACK PAIN [None]
  - BALANCE DISORDER [None]
  - BLINDNESS [None]
  - BLINDNESS UNILATERAL [None]
  - BLOOD CHOLESTEROL INCREASED [None]
  - DECREASED ACTIVITY [None]
  - DEPRESSION [None]
  - DIZZINESS [None]
  - DRUG DEPENDENCE [None]
  - DRY EYE [None]
  - EYE PAIN [None]
  - FATIGUE [None]
  - GLIOSIS [None]
  - HAEMATOCRIT DECREASED [None]
  - HAEMOGLOBIN DECREASED [None]
  - HEADACHE [None]
  - IMPAIRED DRIVING ABILITY [None]
  - INFECTION [None]
  - INFLUENZA LIKE ILLNESS [None]
  - INJURY [None]
  - MUSCLE SPASMS [None]
  - NASOPHARYNGITIS [None]
  - NAUSEA [None]
  - NERVOUSNESS [None]
  - NEURITIS [None]
  - OCULAR VASCULAR DISORDER [None]
  - OPTIC ATROPHY [None]
  - OPTIC ISCHAEMIC NEUROPATHY [None]
  - OPTIC NEURITIS [None]
  - OPTIC NEUROPATHY [None]
  - OTITIS MEDIA [None]
  - PAPILLOEDEMA [None]
  - PHOTOPHOBIA [None]
  - PUPILLARY REFLEX IMPAIRED [None]
  - PURULENT DISCHARGE [None]
  - RED BLOOD CELL COUNT DECREASED [None]
  - SCOTOMA [None]
  - SINUSITIS [None]
  - VARICES OESOPHAGEAL [None]
  - VERTIGO [None]
  - VISION BLURRED [None]
  - VISUAL ACUITY REDUCED [None]
  - VISUAL DISTURBANCE [None]
  - VISUAL FIELD DEFECT [None]
  - VOMITING [None]
  - WALKING AID USER [None]
  - XANTHOPSIA [None]
